FAERS Safety Report 7431832-3 (Version None)
Quarter: 2011Q2

REPORT INFORMATION
  Report Type: 
  Country: None (occurrence: None)
  Receive Date: 20110422
  Receipt Date: 20110412
  Transmission Date: 20111010
  Serious: Yes (Hospitalization, Other)
  Sender: FDA-Public Use
  Company Number: US-ELI_LILLY_AND_COMPANY-US201007000211

PATIENT
  Sex: Female

DRUGS (13)
  1. VITAMIN D [Concomitant]
  2. FORTEO [Suspect]
     Dosage: 20 UG, DAILY (1/D)
  3. FORTEO [Suspect]
     Dosage: 20 UG, DAILY (1/D)
     Dates: end: 20110131
  4. TOPROL-XL [Concomitant]
  5. AMLODIPINE [Concomitant]
  6. SYNTHROID [Concomitant]
  7. COUMADIN [Concomitant]
  8. FORTEO [Suspect]
     Indication: OSTEOPOROSIS
     Dosage: 20 UG, DAILY (1/D)
     Route: 058
     Dates: start: 20100506
  9. AMIODARONE [Concomitant]
  10. LASIX [Concomitant]
  11. CALCIUM [Concomitant]
  12. NEXIUM [Concomitant]
  13. SINGULAIR [Concomitant]

REACTIONS (9)
  - PULMONARY ALVEOLAR HAEMORRHAGE [None]
  - BRONCHITIS [None]
  - OEDEMA PERIPHERAL [None]
  - THYROID FUNCTION TEST ABNORMAL [None]
  - ASTHENIA [None]
  - JOINT SWELLING [None]
  - PULMONARY HYPERTENSION [None]
  - INJECTION SITE HAEMATOMA [None]
  - BLOOD CALCIUM INCREASED [None]
